FAERS Safety Report 5496405-0 (Version None)
Quarter: 2007Q4

REPORT INFORMATION
  Report Type: 
  Country: None (occurrence: None)
  Receive Date: 20071025
  Receipt Date: 20070402
  Transmission Date: 20080405
  Serious: No
  Sender: FDA-Public Use
  Company Number: A0646034A

PATIENT
  Sex: Male

DRUGS (3)
  1. ADVAIR DISKUS 100/50 [Suspect]
     Indication: CHRONIC OBSTRUCTIVE PULMONARY DISEASE
     Route: 055
  2. PREDNISONE [Concomitant]
     Dosage: 40MG UNKNOWN
     Route: 048
  3. SPIRIVA [Concomitant]

REACTIONS (1)
  - DIPLOPIA [None]
